FAERS Safety Report 4668187-3 (Version None)
Quarter: 2005Q2

REPORT INFORMATION
  Report Type: 
  Country: None (occurrence: None)
  Receive Date: 20050523
  Receipt Date: 20050125
  Transmission Date: 20051028
  Serious: Yes (Other)
  Sender: FDA-Public Use
  Company Number: PHEH2005US01287

PATIENT
  Age: 70 Year
  Sex: Male

DRUGS (5)
  1. ZOMETA [Suspect]
     Indication: PROSTATE CANCER
     Dosage: UNK, Q MONTH
  2. FLOMAX [Concomitant]
  3. NEOSPORIN /USA/ [Concomitant]
  4. LIPITOR [Concomitant]
  5. ASPIRIN [Concomitant]
     Dosage: 81 MG, UNK

REACTIONS (8)
  - APICAL GRANULOMA [None]
  - BONE DISORDER [None]
  - DENTAL TREATMENT [None]
  - DENTURE WEARER [None]
  - FACE AND MOUTH X-RAY ABNORMAL [None]
  - IMPAIRED HEALING [None]
  - ORAL SURGERY [None]
  - OSTEONECROSIS [None]
